FAERS Safety Report 17536013 (Version 1)
Quarter: 2020Q1

REPORT INFORMATION
  Report Type: Spontaneous
  Country: PT (occurrence: PT)
  Receive Date: 20200313
  Receipt Date: 20200313
  Transmission Date: 20200409
  Serious: Yes (Other)
  Sender: FDA-Public Use
  Company Number: PT-SA-2020SA062628

PATIENT
  Age: 30 Year
  Sex: Female
  Weight: 48 kg

DRUGS (8)
  1. PREDNISOLONE. [Concomitant]
     Active Substance: PREDNISOLONE
     Dosage: 3 TABLET AT 9 AM
  2. PIPERACILLIN. [Concomitant]
     Active Substance: PIPERACILLIN SODIUM
  3. TAZOBACTAM [Concomitant]
     Active Substance: TAZOBACTAM
  4. MYCOPHENOLATE MOFETIL. [Concomitant]
     Active Substance: MYCOPHENOLATE MOFETIL
     Indication: IMMUNOSUPPRESSION
     Route: 048
  5. PREDNISONE. [Concomitant]
     Active Substance: PREDNISONE
     Indication: IMMUNOSUPPRESSION
  6. TACROLIMUS. [Concomitant]
     Active Substance: TACROLIMUS
     Dosage: - 2 TABLETS AT 11H
     Route: 048
  7. ANTI-THYMOCYTE GLOBULIN (RABBIT) NOS [Suspect]
     Active Substance: LAPINE T-LYMPHOCYTE IMMUNE GLOBULIN
     Indication: IMMUNOSUPPRESSION
     Dosage: 1050MG 7 DAYS
     Route: 042
     Dates: start: 20130615, end: 20130621
  8. MYCOPHENOLIC ACID. [Concomitant]
     Active Substance: MYCOPHENOLIC ACID
     Dosage: 2 TABLETS AT 11AM AND 1 TABLETS AT 11PM

REACTIONS (1)
  - Haemolytic anaemia [Unknown]

NARRATIVE: CASE EVENT DATE: 20130628
